FAERS Safety Report 8135602-2 (Version None)
Quarter: 2012Q1

REPORT INFORMATION
  Report Type: 
  Country: None (occurrence: None)
  Receive Date: 20120214
  Receipt Date: 20120206
  Transmission Date: 20120608
  Serious: Yes (Hospitalization, Other)
  Sender: FDA-Public Use
  Company Number: PHHY2012CA006918

PATIENT
  Sex: Male

DRUGS (2)
  1. AFINITOR [Suspect]
     Indication: PANCREATIC NEUROENDOCRINE TUMOUR METASTATIC
     Dosage: 10 MG, UNK
     Route: 048
     Dates: start: 20120123
  2. SANDOSTATIN LAR [Suspect]
     Indication: PANCREATIC NEUROENDOCRINE TUMOUR METASTATIC
     Dosage: 30 MG, EVERY 4 WEEKS
     Route: 030
     Dates: start: 20120125

REACTIONS (5)
  - HEPATIC FUNCTION ABNORMAL [None]
  - BALANCE DISORDER [None]
  - DIZZINESS [None]
  - DYSPHAGIA [None]
  - CONFUSIONAL STATE [None]
